FAERS Safety Report 14741214 (Version 1)
Quarter: 2018Q2

REPORT INFORMATION
  Report Type: Report from Study
  Country: FR (occurrence: FR)
  Receive Date: 20180410
  Receipt Date: 20180410
  Transmission Date: 20180711
  Serious: Yes (Other)
  Sender: FDA-Public Use
  Company Number: FR-TEVA-2018-FR-879448

PATIENT

DRUGS (4)
  1. FOLINIC ACID [Concomitant]
     Active Substance: LEUCOVORIN
     Indication: CENTRAL NERVOUS SYSTEM LYMPHOMA
     Dosage: FOLINIC ACID AT DAY 1 AND 14, REPEATED EVERY FOUR WEEKS; FOUR CYCLES TOTALLY
     Route: 065
  2. TEMOZOLOMIDE. [Suspect]
     Active Substance: TEMOZOLOMIDE
     Indication: CENTRAL NERVOUS SYSTEM LYMPHOMA
     Dosage: 150 MG/M2 TEMOZOLOMIDE DAYS 7 THROUGH 11, REPEATED EVERY FOUR WEEKS; FOUR CYCLES TOTALLY
     Route: 065
  3. METHOTREXATE. [Suspect]
     Active Substance: METHOTREXATE
     Indication: CENTRAL NERVOUS SYSTEM LYMPHOMA
     Dosage: 8G/M2 METHOTREXATE AT DAY 1 AND 14, REPEATED EVERY FOUR WEEKS; FOUR CYCLES TOTALLY
     Route: 065
  4. RITUXIMAB. [Suspect]
     Active Substance: RITUXIMAB
     Indication: CENTRAL NERVOUS SYSTEM LYMPHOMA
     Dosage: 375 MG/M2 REPEATED EVERY FOUR WEEKS, FOUR CYCLES TOTALLY
     Route: 065

REACTIONS (1)
  - Renal impairment [Recovered/Resolved]
